FAERS Safety Report 20091844 (Version 1)
Quarter: 2021Q4

REPORT INFORMATION
  Report Type: Spontaneous
  Country: US (occurrence: None)
  Receive Date: 20211119
  Receipt Date: 20211119
  Transmission Date: 20220303
  Serious: Yes (Other)
  Sender: FDA-Public Use
  Company Number: None

PATIENT
  Age: 76 Year
  Sex: Female
  Weight: 72.3 kg

DRUGS (1)
  1. DOXIL [Suspect]
     Active Substance: DOXORUBICIN HYDROCHLORIDE
     Indication: Ovarian cancer
     Dosage: OTHER FREQUENCY : EVERY 3 WEEKS;?
     Route: 042
     Dates: start: 20211116

REACTIONS (7)
  - Infusion related reaction [None]
  - Pain [None]
  - Back pain [None]
  - Pain in extremity [None]
  - Nausea [None]
  - Pruritus [None]
  - Skin burning sensation [None]

NARRATIVE: CASE EVENT DATE: 20211116
